FAERS Safety Report 6171745-0 (Version None)
Quarter: 2009Q2

REPORT INFORMATION
  Report Type: 
  Country: None (occurrence: None)
  Receive Date: 20090427
  Receipt Date: 20090427
  Transmission Date: 20091009
  Serious: Yes (Hospitalization)
  Sender: FDA-Public Use
  Company Number: None

PATIENT
  Sex: Female

DRUGS (2)
  1. DIGOXIN [Suspect]
     Dosage: TAKE ONE TABLET DAILY PO
     Route: 048
     Dates: start: 20081222, end: 20090420
  2. DIGOXIN [Suspect]

REACTIONS (2)
  - HEART RATE INCREASED [None]
  - HYPERVENTILATION [None]
